FAERS Safety Report 6321797-X (Version None)
Quarter: 2009Q3

REPORT INFORMATION
  Report Type: 
  Country: None (occurrence: None)
  Receive Date: 20090819
  Receipt Date: 20090807
  Transmission Date: 20100115
  Serious: Yes (Hospitalization)
  Sender: FDA-Public Use
  Company Number: 351362

PATIENT
  Age: 69 Year
  Sex: Female

DRUGS (15)
  1. VINCRISTINE [Suspect]
     Indication: LYMPHOMA
     Dosage: 2 MG  INTRAVENOUS
     Route: 042
     Dates: start: 20090317, end: 20090317
  2. DOXORUBICIN HCL [Suspect]
     Indication: LYMPHOMA
     Dosage: 81 MG,  INTRAVENOUS
     Route: 042
     Dates: start: 20090317, end: 20090317
  3. ENDOXAN /00021101/ [Suspect]
     Indication: DRUG USE FOR UNKNOWN INDICATION
     Dosage: INTRAVENOUS
     Route: 042
     Dates: start: 20090317, end: 20090317
  4. MABTHERA [Suspect]
     Indication: DRUG USE FOR UNKNOWN INDICATION
     Route: 042
     Dates: start: 20090317, end: 20090317
  5. KARDEGIC /00002703/ [Concomitant]
  6. ORACILLINE /00001801/ [Concomitant]
  7. INEXIUM /01479302/ [Concomitant]
  8. ZELITREX /01269701/ [Concomitant]
  9. UROMITEXAN [Concomitant]
  10. NOVORAPID [Concomitant]
  11. NOVOMIX /01475801/ [Concomitant]
  12. CANDESARTAN CILEXETIL [Concomitant]
  13. BACTRIM [Concomitant]
  14. CHLORAMINOPHENE [Concomitant]
  15. PREDNISONE [Concomitant]
     Route: 065

REACTIONS (1)
  - PANCYTOPENIA [None]
